FAERS Safety Report 10094601 (Version 1)
Quarter: 2014Q2

REPORT INFORMATION
  Report Type: Spontaneous
  Country: US (occurrence: None)
  Receive Date: 20140421
  Receipt Date: 20140421
  Transmission Date: 20141212
  Serious: Yes (Hospitalization)
  Sender: FDA-Public Use
  Company Number: None

PATIENT
  Age: 15 Year
  Sex: Female
  Weight: 72.58 kg

DRUGS (1)
  1. BUSPAR [Suspect]
     Indication: ANXIETY
     Dosage: 1 PILL TWICE DAILY, TWICE DAILY, TAKEN BY MOUTH
     Route: 048

REACTIONS (2)
  - Anger [None]
  - Crying [None]
